FAERS Safety Report 13945292 (Version 1)
Quarter: 2017Q3

REPORT INFORMATION
  Report Type: Spontaneous
  Country: US (occurrence: US)
  Receive Date: 20170907
  Receipt Date: 20170907
  Transmission Date: 20171128
  Serious: Yes (Other)
  Sender: FDA-Public Use
  Company Number: US-OTSUKA-2017_018780

PATIENT

DRUGS (12)
  1. ETOPOSIDE. [Concomitant]
     Active Substance: ETOPOSIDE
     Indication: CHEMOTHERAPY
     Dosage: UNK
     Route: 065
  2. LEVETIRACETAM. [Concomitant]
     Active Substance: LEVETIRACETAM
     Indication: SEIZURE
     Dosage: UNK
     Route: 065
  3. GM-CSF [Suspect]
     Active Substance: GRANULOCYTE-MACROPHAGE COLONY-STIMULATING FACTOR
     Indication: IMMUNOSUPPRESSANT DRUG THERAPY
     Dosage: (250 ?G/M2/DOSE) BEGAN ON DAY 10, QD
     Route: 065
  4. VINCRISTINE [Concomitant]
     Active Substance: VINCRISTINE
     Indication: CHEMOTHERAPY
     Dosage: UNK
     Route: 065
  5. MELPHALAN. [Suspect]
     Active Substance: MELPHALAN
     Indication: STEM CELL TRANSPLANT
     Dosage: 70 MG/M2/ DOSE FOR PATIENTS} 10 KG OR 2.3 MG/KG/DOSE FOR PATIENTS {= 10 KG DAILY, ON DAYS -2 TO -1
     Route: 042
  6. CISPLATIN. [Concomitant]
     Active Substance: CISPLATIN
     Indication: CHEMOTHERAPY
     Dosage: UNK
     Route: 065
  7. DOXORUBICIN [Concomitant]
     Active Substance: DOXORUBICIN
     Indication: CHEMOTHERAPY
     Dosage: UNK
     Route: 065
  8. LEVETIRACETAM. [Concomitant]
     Active Substance: LEVETIRACETAM
     Indication: PROPHYLAXIS
  9. IL-2 [Suspect]
     Active Substance: ALDESLEUKIN
     Indication: IMMUNOSUPPRESSANT DRUG THERAPY
     Dosage: (106 UNITS/M2/DOSE) BEGINNING ON, QOD
     Route: 058
  10. TOPOTECAN [Concomitant]
     Active Substance: TOPOTECAN HYDROCHLORIDE
     Indication: CHEMOTHERAPY
     Dosage: UNK
     Route: 065
  11. BUSULFEX [Suspect]
     Active Substance: BUSULFAN
     Indication: STEM CELL TRANSPLANT
     Dosage: 0.8 MG/KG, (FOR PATIENTS } 12 KG OR 1.1 MG/KG/DOSE FOR PATIENTS ?12 KG, GIVEN 6 HOURS, QD
     Route: 042
  12. CYCLOPHOSPHAMIDE. [Concomitant]
     Active Substance: CYCLOPHOSPHAMIDE
     Indication: CHEMOTHERAPY
     Dosage: UNK
     Route: 065

REACTIONS (8)
  - Gastrointestinal haemorrhage [Unknown]
  - Respiratory failure [Unknown]
  - Encephalopathy [Unknown]
  - Coagulopathy [Unknown]
  - Multiple organ dysfunction syndrome [Unknown]
  - Small intestinal obstruction [Unknown]
  - Pneumatosis [Unknown]
  - Traumatic lung injury [Unknown]
